FAERS Safety Report 10738485 (Version 1)
Quarter: 2015Q1

REPORT INFORMATION
  Report Type: Spontaneous
  Country: US (occurrence: None)
  Receive Date: 20150112
  Receipt Date: 20150112
  Transmission Date: 20150721
  Serious: Yes (Death)
  Sender: FDA-Public Use
  Company Number: 1331522

PATIENT
  Sex: Male

DRUGS (1)
  1. ACTIVASE [Suspect]
     Active Substance: ALTEPLASE
     Indication: ISCHAEMIC STROKE
     Dosage: (NOT OTHERWISE SPECIFIED)
     Route: 042
     Dates: start: 2013

REACTIONS (1)
  - Haemorrhage [None]

NARRATIVE: CASE EVENT DATE: 2013
